FAERS Safety Report 10188195 (Version 2)
Quarter: 2014Q2

REPORT INFORMATION
  Report Type: Report from Study
  Country: US (occurrence: US)
  Receive Date: 20140522
  Receipt Date: 20140522
  Transmission Date: 20141212
  Serious: Yes (Hospitalization)
  Sender: FDA-Public Use
  Company Number: US-ROCHE-1148768

PATIENT
  Age: 66 Year
  Sex: Female
  Weight: 58.5 kg

DRUGS (38)
  1. OBINUTUZUMAB [Suspect]
     Indication: NON-HODGKIN^S LYMPHOMA UNSPECIFIED HISTOLOGY INDOLENT
     Dosage: DATE OF MOST RECENT DOSE (VOLUME : 250 ML AND LAST DOSE CONCENTRATION : 4 MG/ML) PRIOR TO SAE: 22/OC
     Route: 042
     Dates: start: 20121015
  2. OBINUTUZUMAB [Suspect]
     Route: 042
     Dates: start: 20121022
  3. OBINUTUZUMAB [Suspect]
     Route: 042
     Dates: start: 20121107
  4. BENDAMUSTINE [Suspect]
     Indication: NON-HODGKIN^S LYMPHOMA UNSPECIFIED HISTOLOGY INDOLENT
     Dosage: DATE OF MOST RECENT DOSE (145.8 MG) : 16/OCT/2012.
     Route: 042
     Dates: start: 20121015
  5. PREDNISONE [Suspect]
     Indication: NON-HODGKIN^S LYMPHOMA UNSPECIFIED HISTOLOGY INDOLENT
     Dosage: MOST RECENT DOSE PRIOR TO SAE:07/NOV/2012. LAST DRUG TAKEN: 20 MG
     Route: 042
  6. BIOTIN [Concomitant]
     Indication: NUTRITIONAL SUPPLEMENTATION
     Route: 065
     Dates: start: 20121001
  7. AMLODIPINE [Concomitant]
     Indication: HYPERTENSION
     Route: 065
     Dates: start: 20121008, end: 20121029
  8. HYDROCHLOROTHIAZIDE [Concomitant]
     Indication: HYPERTENSION
     Route: 065
     Dates: start: 20091229, end: 20121029
  9. FAMOTIDINE [Concomitant]
     Indication: GASTROOESOPHAGEAL REFLUX DISEASE
     Route: 065
     Dates: start: 20120820
  10. OMEGA 3 FATTY ACIDS [Concomitant]
     Indication: NUTRITIONAL SUPPLEMENTATION
     Route: 065
     Dates: start: 20080908
  11. ACETAMINOPHEN [Concomitant]
     Indication: PYREXIA
     Route: 065
     Dates: start: 20121015, end: 20121016
  12. ACETAMINOPHEN [Concomitant]
     Indication: PAIN
     Route: 065
     Dates: start: 20121023, end: 20121025
  13. SODIUM CHLORIDE [Concomitant]
     Route: 065
     Dates: start: 20121015, end: 20121015
  14. DEXAMETHASONE [Concomitant]
     Route: 065
     Dates: start: 20121015, end: 20121015
  15. ALLOPURINOL [Concomitant]
     Indication: LYMPHOMA
     Route: 065
     Dates: start: 20121008, end: 20121107
  16. REGULAR INSULIN [Concomitant]
     Indication: HYPERGLYCAEMIA
     Route: 065
     Dates: start: 20121022, end: 20121024
  17. ENOXAPARIN [Concomitant]
     Indication: THROMBOSIS PROPHYLAXIS
     Route: 065
     Dates: start: 20121108, end: 20121110
  18. ENOXAPARIN [Concomitant]
     Route: 065
     Dates: start: 20121023, end: 20121028
  19. DEXTROSE [Concomitant]
     Indication: FLUID REPLACEMENT
     Route: 065
     Dates: start: 20121022, end: 20121023
  20. ETOMIDATE [Concomitant]
     Route: 065
     Dates: start: 20121022, end: 20121022
  21. HEPARIN [Concomitant]
     Indication: THROMBOSIS PROPHYLAXIS
     Route: 065
     Dates: start: 20121022, end: 20121023
  22. IOVERSOL [Concomitant]
     Route: 065
     Dates: start: 20121022, end: 20121022
  23. NITROGLYCERINE [Concomitant]
     Indication: ANGINA PECTORIS
     Route: 065
     Dates: start: 20121022, end: 20121023
  24. ONDANSETRON [Concomitant]
     Indication: VOMITING
     Route: 065
     Dates: start: 20121022, end: 20121027
  25. ONDANSETRON [Concomitant]
     Indication: NAUSEA
     Route: 065
     Dates: start: 20121015, end: 20121015
  26. POTASSIUM CHLORIDE [Concomitant]
     Indication: HYPOKALAEMIA
     Route: 065
     Dates: start: 20121024, end: 20121029
  27. POTASSIUM CHLORIDE [Concomitant]
     Indication: ELECTROLYTE SUBSTITUTION THERAPY
     Route: 065
     Dates: start: 20121030, end: 20130624
  28. SUCCINYLCHOLINE [Concomitant]
     Indication: ANAESTHESIA
     Route: 065
     Dates: start: 20121022, end: 20121022
  29. ATORVASTATIN [Concomitant]
     Indication: HYPERLIPIDAEMIA
     Route: 065
     Dates: start: 20121023
  30. CHLORHEXIDINE GLUCONATE [Concomitant]
     Route: 065
     Dates: start: 20121023, end: 20121024
  31. BUMETANIDE [Concomitant]
     Indication: OEDEMA
     Route: 065
     Dates: start: 20121028, end: 20121029
  32. DOXYCYCLINE [Concomitant]
     Route: 065
     Dates: start: 20121023, end: 20121023
  33. IMIPENEM-CILASTATIN [Concomitant]
     Route: 065
     Dates: start: 20121023, end: 20121029
  34. PROPOFOL [Concomitant]
     Indication: SEDATION
     Route: 065
     Dates: start: 20121022, end: 20121024
  35. SODIUM CHLORIDE [Concomitant]
     Indication: FLUID REPLACEMENT
     Route: 065
     Dates: start: 20121023, end: 20121026
  36. SODIUM CHLORIDE [Concomitant]
     Route: 065
     Dates: start: 20121015, end: 20121015
  37. VANCOMYCIN [Concomitant]
     Indication: INFECTION PROPHYLAXIS
     Route: 065
     Dates: start: 20121023, end: 20121029
  38. ZOLPIDEM [Concomitant]
     Indication: INSOMNIA
     Route: 065
     Dates: start: 20121022, end: 20121028

REACTIONS (5)
  - Hyperglycaemia [Unknown]
  - Atrial fibrillation [Unknown]
  - Tachycardia [Unknown]
  - Pulmonary oedema [Recovered/Resolved]
  - Cardiac failure congestive [Recovered/Resolved]
